FAERS Safety Report 21250081 (Version 1)
Quarter: 2022Q3

REPORT INFORMATION
  Report Type: Spontaneous
  Country: US (occurrence: None)
  Receive Date: 20220823
  Receipt Date: 20220823
  Transmission Date: 20221027
  Serious: No
  Sender: FDA-Public Use
  Company Number: None

PATIENT
  Age: 68 Year
  Sex: Male
  Weight: 124 kg

DRUGS (1)
  1. DEFINITY [Suspect]
     Active Substance: PERFLUTREN
     Indication: Cardiac failure congestive
     Dosage: FREQUENCY : ONCE;?
     Route: 042
     Dates: start: 20220818, end: 20220818

REACTIONS (1)
  - Back pain [None]

NARRATIVE: CASE EVENT DATE: 20220818
